FAERS Safety Report 21761105 (Version 1)
Quarter: 2022Q4

REPORT INFORMATION
  Report Type: Spontaneous
  Country: IT (occurrence: IT)
  Receive Date: 20221221
  Receipt Date: 20221221
  Transmission Date: 20230112
  Serious: Yes (Life-Threatening, Hospitalization)
  Sender: FDA-Public Use
  Company Number: None

PATIENT
  Age: 42 Year
  Sex: Male
  Weight: 70 kg

DRUGS (3)
  1. RITUXIMAB-PVVR [Suspect]
     Active Substance: RITUXIMAB-PVVR
     Indication: Glomerulonephritis membranous
     Dosage: 1000 MG, WEEKLY
     Route: 042
     Dates: start: 20220825, end: 20220825
  2. TRIMETON [Concomitant]
     Active Substance: CHLORPHENIRAMINE MALEATE
     Indication: Prophylaxis
     Dosage: 1 DF, SINGLE (1 VIAL IN 100 ML OF PHYSIOLOGICAL SALINE)
     Dates: start: 20220825, end: 20220825
  3. FLEBOCORTID RICHTER [Concomitant]
     Indication: Prophylaxis
     Dosage: 200 MG, SINGLE
     Dates: start: 20220825, end: 20220825

REACTIONS (3)
  - Hypotension [Recovered/Resolved]
  - Erythema [Recovered/Resolved]
  - Off label use [Recovered/Resolved]

NARRATIVE: CASE EVENT DATE: 20220825
